FAERS Safety Report 5279351-7 (Version None)
Quarter: 2007Q1

REPORT INFORMATION
  Report Type: 
  Country: None (occurrence: None)
  Receive Date: 20070328
  Receipt Date: 20060222
  Transmission Date: 20070707
  Serious: No
  Sender: FDA-Public Use
  Company Number: US-AMGEN-US163252

PATIENT
  Sex: Female

DRUGS (4)
  1. NEULASTA [Suspect]
     Indication: CHEMOTHERAPY
     Dates: start: 20050101
  2. ETOPOSIDE [Concomitant]
  3. IFOSFAMIDE [Concomitant]
  4. CARBOPLATIN [Concomitant]

REACTIONS (2)
  - PERIPHERAL T-CELL LYMPHOMA UNSPECIFIED [None]
  - WHITE BLOOD CELL COUNT INCREASED [None]
